FAERS Safety Report 18944162 (Version 1)
Quarter: 2021Q1

REPORT INFORMATION
  Report Type: Report from Study
  Country: US (occurrence: US)
  Receive Date: 20210226
  Receipt Date: 20210226
  Transmission Date: 20210420
  Serious: No
  Sender: FDA-Public Use
  Company Number: US-BIOVITRUM-2021US1785

PATIENT
  Age: 38 Year
  Sex: Female

DRUGS (1)
  1. KINERET [Suspect]
     Active Substance: ANAKINRA
     Indication: POLYARTHRITIS
     Route: 058
     Dates: start: 20190417

REACTIONS (4)
  - Swelling [Recovered/Resolved]
  - Off label use [Not Recovered/Not Resolved]
  - Dermatitis [Recovered/Resolved]
  - Pruritus [Recovered/Resolved]

NARRATIVE: CASE EVENT DATE: 20190417
